FAERS Safety Report 4964704-4 (Version None)
Quarter: 2006Q2

REPORT INFORMATION
  Report Type: 
  Country: None (occurrence: None)
  Receive Date: 20060406
  Receipt Date: 20050823
  Transmission Date: 20061013
  Serious: Yes (Hospitalization, Disabling, Other)
  Sender: FDA-Public Use
  Company Number: US-MERCK-0508USA03951

PATIENT
  Age: 43 Year
  Sex: Female
  Weight: 55 kg

DRUGS (23)
  1. VIOXX [Suspect]
     Indication: SYSTEMIC LUPUS ERYTHEMATOSUS
     Route: 048
     Dates: start: 20000615, end: 20040624
  2. PREDNISONE [Concomitant]
     Indication: INFLAMMATION
     Route: 065
  3. LORCET-HD [Concomitant]
     Indication: PAIN
     Route: 065
     Dates: start: 19920101
  4. LEVOXYL [Concomitant]
     Indication: THYROID DISORDER
     Route: 065
  5. TRAVATAN [Concomitant]
     Indication: GLAUCOMA
     Route: 065
  6. WELLBUTRIN [Concomitant]
     Indication: EX-SMOKER
     Route: 065
     Dates: start: 20001216, end: 20021213
  7. BUSPAR [Concomitant]
     Route: 065
  8. TRAZODONE HYDROCHLORIDE [Concomitant]
     Route: 065
  9. BETOPTIC [Concomitant]
     Route: 065
  10. DURATUSS G [Concomitant]
     Route: 065
  11. HYDROXYZINE HYDROCHLORIDE [Concomitant]
     Route: 065
  12. SARAFEM [Concomitant]
     Route: 065
  13. ACYCLOVIR [Concomitant]
     Route: 065
  14. TRIMOX [Concomitant]
     Route: 065
  15. METRONIDAZOLE [Concomitant]
     Route: 065
  16. VICODIN [Concomitant]
     Route: 065
  17. CHLORHEXIDINE HYDROCHLORIDE [Concomitant]
     Route: 065
  18. ZITHROMAX [Concomitant]
     Route: 065
  19. CUTIVATE [Concomitant]
     Route: 065
  20. CIPROFLOXACIN [Concomitant]
     Route: 065
  21. MAVIK [Concomitant]
     Route: 065
  22. ALLEGRA [Concomitant]
     Route: 065
  23. ATIVAN [Concomitant]
     Route: 048

REACTIONS (12)
  - AGITATION [None]
  - CHEST PAIN [None]
  - CORONARY ARTERY DISEASE [None]
  - DEPRESSION [None]
  - GENERALISED ANXIETY DISORDER [None]
  - HYPERLIPIDAEMIA [None]
  - MYOCARDIAL INFARCTION [None]
  - OVARIAN DISORDER [None]
  - POST-TRAUMATIC STRESS DISORDER [None]
  - SINUS BRADYCARDIA [None]
  - SLEEP DISORDER [None]
  - VENTRICULAR HYPERTROPHY [None]
